FAERS Safety Report 6914058-9 (Version None)
Quarter: 2010Q3

REPORT INFORMATION
  Report Type: 
  Country: None (occurrence: None)
  Receive Date: 20100809
  Receipt Date: 20100802
  Transmission Date: 20110219
  Serious: Yes (Life-Threatening, Other)
  Sender: FDA-Public Use
  Company Number: PHHY2010US50809

PATIENT
  Sex: Male

DRUGS (2)
  1. DIOVAN HCT [Suspect]
  2. METOPROLOL SUCCINATE [Suspect]

REACTIONS (13)
  - DERMATITIS CONTACT [None]
  - DISEASE PROGRESSION [None]
  - DRY SKIN [None]
  - ECZEMA [None]
  - ECZEMA NUMMULAR [None]
  - FEELING ABNORMAL [None]
  - PAIN [None]
  - PHOTODERMATOSIS [None]
  - RASH [None]
  - SKIN DISORDER [None]
  - SKIN EXFOLIATION [None]
  - SKIN OEDEMA [None]
  - URTICARIA [None]
